FAERS Safety Report 25151367 (Version 3)
Quarter: 2025Q2

REPORT INFORMATION
  Report Type: Spontaneous
  Country: US (occurrence: US)
  Receive Date: 20250402
  Receipt Date: 20250509
  Transmission Date: 20250716
  Serious: Yes (Life-Threatening, Hospitalization, Other)
  Sender: SANOFI AVENTIS
  Company Number: US-DialogSolutions-SAAVPROD-PI753871-C1

PATIENT
  Age: 50 Year
  Sex: Female

DRUGS (10)
  1. TAMSULOSIN HYDROCHLORIDE [Suspect]
     Active Substance: TAMSULOSIN HYDROCHLORIDE
  2. DULOXETINE HYDROCHLORIDE [Suspect]
     Active Substance: DULOXETINE HYDROCHLORIDE
  3. TRAZODONE HYDROCHLORIDE [Suspect]
     Active Substance: TRAZODONE HYDROCHLORIDE
  4. CLONIDINE [Suspect]
     Active Substance: CLONIDINE
  5. GABAPENTIN [Suspect]
     Active Substance: GABAPENTIN
  6. CYCLOBENZAPRINE [Suspect]
     Active Substance: CYCLOBENZAPRINE
  7. METHOCARBAMOL [Suspect]
     Active Substance: METHOCARBAMOL
  8. MAGNESIUM OXIDE [Suspect]
     Active Substance: MAGNESIUM OXIDE
  9. OLANZAPINE [Suspect]
     Active Substance: OLANZAPINE
  10. BUPROPION [Suspect]
     Active Substance: BUPROPION

REACTIONS (6)
  - Distributive shock [Recovering/Resolving]
  - Hypotension [Recovering/Resolving]
  - Intentional overdose [Recovering/Resolving]
  - Tachycardia [Recovering/Resolving]
  - Hypoxia [Recovering/Resolving]
  - Depressed level of consciousness [Recovering/Resolving]
